FAERS Safety Report 23710987 (Version 1)
Quarter: 2024Q2

REPORT INFORMATION
  Report Type: Spontaneous
  Country: FR (occurrence: FR)
  Receive Date: 20240405
  Receipt Date: 20240405
  Transmission Date: 20240715
  Serious: Yes (Other)
  Sender: FDA-Public Use
  Company Number: FR-AFSSAPS-AM2023001219

PATIENT
  Age: 92 Year
  Sex: Female

DRUGS (5)
  1. VENLAFAXINE [Suspect]
     Active Substance: VENLAFAXINE HYDROCHLORIDE
     Indication: Wrong patient
     Dosage: 75 MILLIGRAM, IN TOTAL
     Route: 048
     Dates: start: 20231224, end: 20231224
  2. RISPERIDONE [Suspect]
     Active Substance: RISPERIDONE
     Indication: Wrong patient
     Dosage: 2 MILLIGRAM, IN TOTAL
     Route: 048
     Dates: start: 20231224, end: 20231224
  3. CANDESARTAN [Suspect]
     Active Substance: CANDESARTAN
     Indication: Wrong patient
     Dosage: 8 MILLIGRAM, IN TOTAL
     Route: 048
     Dates: start: 20231224, end: 20231224
  4. VALPROMIDE [Suspect]
     Active Substance: VALPROMIDE
     Indication: Wrong patient
     Dosage: 300 MILLIGRAM, IN TOTAL
     Route: 048
     Dates: start: 20231224, end: 20231224
  5. POTASSIUM CHLORIDE [Suspect]
     Active Substance: POTASSIUM CHLORIDE
     Indication: Wrong patient
     Dosage: 600 MILLIGRAM, IN TOTAL
     Route: 048
     Dates: start: 20231224, end: 20231224

REACTIONS (2)
  - Wrong patient received product [Recovered/Resolved]
  - Blood pressure increased [Recovered/Resolved]

NARRATIVE: CASE EVENT DATE: 20231224
